FAERS Safety Report 7899852-2 (Version None)
Quarter: 2011Q4

REPORT INFORMATION
  Report Type: 
  Country: None (occurrence: None)
  Receive Date: 20111107
  Receipt Date: 20110924
  Transmission Date: 20120403
  Serious: No
  Sender: FDA-Public Use
  Company Number: US-AMGEN-USASP2011045889

PATIENT
  Age: 41 Year
  Sex: Female
  Weight: 94.785 kg

DRUGS (5)
  1. CELEBREX [Concomitant]
     Dosage: 100 MG, UNK
  2. ENBREL [Suspect]
     Indication: PSORIATIC ARTHROPATHY
     Dosage: 50 MG, QWK
     Route: 058
     Dates: start: 20110803
  3. CYMBALTA [Concomitant]
     Dosage: 20 MG, UNK
  4. MULTIVITAMIN                       /00097801/ [Concomitant]
  5. VIACTIV                            /00751501/ [Concomitant]

REACTIONS (3)
  - INJECTION SITE HAEMATOMA [None]
  - RHEUMATOID ARTHRITIS [None]
  - INJECTION SITE PAIN [None]
